FAERS Safety Report 9777600 (Version 2)
Quarter: 2013Q4

REPORT INFORMATION
  Report Type: Spontaneous
  Country: ZA (occurrence: ZA)
  Receive Date: 20131222
  Receipt Date: 20131222
  Transmission Date: 20140711
  Serious: Yes (Other)
  Sender: FDA-Public Use
  Company Number: ZA-009507513-1312ZAF001482

PATIENT
  Age: 55 Year
  Sex: Male

DRUGS (2)
  1. INVANZ [Suspect]
     Indication: INFECTION
     Dosage: TOTAL DIALY DOSE: 1 GRAM
     Route: 042
     Dates: start: 20131129, end: 2013
  2. INVANZ [Suspect]
     Indication: SEPSIS

REACTIONS (5)
  - Inflammation [Recovered/Resolved]
  - Debridement [Unknown]
  - Wound [Unknown]
  - Hypersensitivity [Recovered/Resolved]
  - Erythema [Recovered/Resolved]
